FAERS Safety Report 10202913 (Version 1)
Quarter: 2014Q2

REPORT INFORMATION
  Report Type: Spontaneous
  Country: US (occurrence: US)
  Receive Date: 20140522
  Receipt Date: 20140522
  Transmission Date: 20141212
  Serious: No
  Sender: FDA-Public Use
  Company Number: US-SA-2014SA044211

PATIENT
  Age: 55 Year
  Sex: Female

DRUGS (4)
  1. LANTUS SOLOSTAR [Suspect]
     Indication: DIABETES MELLITUS
     Dosage: DOSE:45 UNIT(S)
     Route: 065
  2. LANTUS SOLOSTAR [Suspect]
     Indication: DIABETES MELLITUS
     Dosage: DOSE:50 UNIT(S)
     Route: 065
  3. SOLOSTAR [Concomitant]
  4. SOLOSTAR [Concomitant]

REACTIONS (2)
  - Feeling abnormal [Unknown]
  - Glycosylated haemoglobin increased [Unknown]
